FAERS Safety Report 19313050 (Version 1)
Quarter: 2021Q2

REPORT INFORMATION
  Report Type: Other
  Country: US (occurrence: US)
  Receive Date: 20210527
  Receipt Date: 20210527
  Transmission Date: 20210717
  Serious: Yes (Other)
  Sender: FDA-Public Use
  Company Number: US-INVENTIA-000097

PATIENT
  Age: 56 Year
  Sex: Female

DRUGS (1)
  1. FLUOXETINE [Suspect]
     Active Substance: FLUOXETINE HYDROCHLORIDE
     Indication: DEPRESSION
     Dosage: 40 MG

REACTIONS (3)
  - Rapid eye movements sleep abnormal [Recovered/Resolved]
  - Apnoea [Recovered/Resolved]
  - Condition aggravated [Recovered/Resolved]
